FAERS Safety Report 11219114 (Version 1)
Quarter: 2015Q2

REPORT INFORMATION
  Report Type: Spontaneous
  Country: ES (occurrence: ES)
  Receive Date: 20150625
  Receipt Date: 20150625
  Transmission Date: 20150821
  Serious: Yes (Hospitalization)
  Sender: FDA-Public Use
  Company Number: ES-GILEAD-2015-0159545

PATIENT
  Age: 59 Year
  Sex: Male

DRUGS (17)
  1. INSULIN GLARGINE [Concomitant]
     Active Substance: INSULIN GLARGINE
  2. METFORMIN [Concomitant]
     Active Substance: METFORMIN HYDROCHLORIDE
  3. ALPROSTADIL. [Concomitant]
     Active Substance: ALPROSTADIL
  4. LANSOPRAZOLE. [Concomitant]
     Active Substance: LANSOPRAZOLE
  5. SOVALDI [Suspect]
     Active Substance: SOFOSBUVIR
     Indication: CHRONIC HEPATITIS C
     Dosage: 400 MG, QD
     Route: 048
     Dates: start: 20150105, end: 20150403
  6. RIBAVIRIN. [Suspect]
     Active Substance: RIBAVIRIN
     Indication: CHRONIC HEPATITIS C
     Dosage: UNK, QD
     Route: 048
     Dates: start: 20150105, end: 20150331
  7. CALCIUM CARBONATE AND VITAMIN D [Concomitant]
  8. PARACETAMOL [Concomitant]
     Active Substance: ACETAMINOPHEN
  9. INTERFERON ALFA NOS [Suspect]
     Active Substance: INTERFERON ALFA-2A OR INTERFERON ALFA-2B
     Indication: CHRONIC HEPATITIS C
     Dosage: UNK UNK, Q1WK
     Route: 058
     Dates: start: 20150105, end: 20150403
  10. INSULIN LISPRO PROTAMINE SUSPENSION [Concomitant]
  11. TAMSULOSIN [Concomitant]
     Active Substance: TAMSULOSIN
  12. ADIRO [Concomitant]
     Active Substance: ASPIRIN
     Route: 048
  13. DULOXETINA [Concomitant]
     Active Substance: DULOXETINE
     Route: 048
  14. NITROGLYCERIN. [Concomitant]
     Active Substance: NITROGLYCERIN
  15. ENALAPRIL [Concomitant]
     Active Substance: ENALAPRIL
     Route: 048
  16. ATENOLOL. [Concomitant]
     Active Substance: ATENOLOL
  17. AMLODIPINE [Concomitant]
     Active Substance: AMLODIPINE BESYLATE

REACTIONS (2)
  - Cough [Recovered/Resolved]
  - Haemoptysis [Recovered/Resolved]

NARRATIVE: CASE EVENT DATE: 20150313
